FAERS Safety Report 8428205 (Version 2)
Quarter: 2012Q4

REPORT INFORMATION
  Report Type: 
  Country: GB (occurrence: GB)
  Receive Date: 20120227
  Receipt Date: 20121015
  Transmission Date: 20130627
  Serious: Yes (Life-Threatening, Hospitalization)
  Sender: FDA-Public Use
  Company Number: GB-ROCHE-1042179

PATIENT
  Age: 51 Year
  Sex: Female
  Weight: 60 kg

DRUGS (11)
  1. RITUXIMAB [Suspect]
     Indication: RHEUMATOID ARTHRITIS
     Route: 042
     Dates: start: 200910
  2. RITUXIMAB [Suspect]
     Route: 042
     Dates: start: 201008
  3. RITUXIMAB [Suspect]
     Route: 042
     Dates: start: 201105
  4. AMLODIPINE [Concomitant]
  5. CALCICHEW [Concomitant]
  6. LEFLUNOMIDE [Concomitant]
     Route: 048
  7. METHOTREXATE [Concomitant]
     Route: 048
  8. NEXIUM [Concomitant]
  9. RAMIPRIL [Concomitant]
     Route: 065
  10. SPIRIVA [Concomitant]
  11. VENTOLIN [Concomitant]

REACTIONS (1)
  - Endometrial cancer stage III [Recovered/Resolved]
